FAERS Safety Report 11570489 (Version 1)
Quarter: 2015Q3

REPORT INFORMATION
  Report Type: Spontaneous
  Country: US (occurrence: US)
  Receive Date: 20150929
  Receipt Date: 20150929
  Transmission Date: 20151125
  Serious: Yes (Hospitalization, Other)
  Sender: FDA-Public Use
  Company Number: US-SUPERNUS PHARMACEUTICALS, INC.-2015SUP00035

PATIENT
  Sex: Female
  Weight: 68.27 kg

DRUGS (10)
  1. TROKENDI XR [Suspect]
     Active Substance: TOPIRAMATE
     Indication: SEIZURE
     Dosage: 150 MG, 1X/DAY
     Route: 048
     Dates: start: 201410, end: 201501
  2. PREMARIN [Concomitant]
     Active Substance: ESTROGENS, CONJUGATED
     Route: 048
  3. CALCIUM [Concomitant]
     Active Substance: CALCIUM
  4. MULTIVITAMIN [Concomitant]
     Active Substance: VITAMINS
  5. TROKENDI XR [Suspect]
     Active Substance: TOPIRAMATE
     Dosage: 50 MG, 2X/DAY
  6. TROKENDI XR [Suspect]
     Active Substance: TOPIRAMATE
     Dosage: 150 MG, 1X/DAY
     Route: 048
     Dates: start: 20150220, end: 2015
  7. LAMICTAL [Concomitant]
     Active Substance: LAMOTRIGINE
  8. LEVOTHYROXINE. [Concomitant]
     Active Substance: LEVOTHYROXINE
  9. TROKENDI XR [Suspect]
     Active Substance: TOPIRAMATE
     Indication: EPILEPSY
     Dosage: 200 MG, 1X/DAY
     Route: 048
     Dates: start: 20150130, end: 20150219
  10. TROKENDI XR [Suspect]
     Active Substance: TOPIRAMATE
     Dosage: 200 MG, 2X/DAY
     Dates: start: 201501

REACTIONS (29)
  - Paraesthesia [Recovering/Resolving]
  - Hypersensitivity [Unknown]
  - Headache [Recovering/Resolving]
  - Gait disturbance [Recovered/Resolved]
  - Seizure [Recovered/Resolved]
  - Feeling abnormal [Recovering/Resolving]
  - Confusional state [Recovering/Resolving]
  - Cognitive disorder [Unknown]
  - Feeling drunk [Recovering/Resolving]
  - Anxiety [Recovering/Resolving]
  - Epistaxis [Unknown]
  - Vomiting [Recovered/Resolved]
  - Vertigo [Recovered/Resolved]
  - Drug interaction [Recovered/Resolved]
  - Diplopia [Recovered/Resolved]
  - Euphoric mood [Recovered/Resolved]
  - Dysphemia [Recovering/Resolving]
  - Pain in extremity [Recovering/Resolving]
  - Dry mouth [Recovering/Resolving]
  - Tremor [Unknown]
  - Amnesia [Not Recovered/Not Resolved]
  - Abdominal pain upper [Recovered/Resolved]
  - Dizziness [Recovered/Resolved]
  - Hypoaesthesia [Recovering/Resolving]
  - Muscle spasms [Recovering/Resolving]
  - Loss of consciousness [Recovered/Resolved]
  - Nausea [Recovered/Resolved]
  - Thirst [Recovering/Resolving]
  - Anger [Recovering/Resolving]

NARRATIVE: CASE EVENT DATE: 2014
